FAERS Safety Report 16885030 (Version 1)
Quarter: 2019Q4

REPORT INFORMATION
  Report Type: Spontaneous
  Country: US (occurrence: US)
  Receive Date: 20191003
  Receipt Date: 20191003
  Transmission Date: 20200122
  Serious: Yes (Death)
  Sender: FDA-Public Use
  Company Number: None

PATIENT
  Age: 83 Year
  Sex: Female

DRUGS (6)
  1. SPIRONOLACTONE. [Concomitant]
     Active Substance: SPIRONOLACTONE
  2. FUROSEMIDE. [Concomitant]
     Active Substance: FUROSEMIDE
  3. TADALAFIL. [Suspect]
     Active Substance: TADALAFIL
     Indication: HYPERTENSION
     Route: 048
     Dates: start: 20181112, end: 20190918
  4. CARVEDILOL. [Concomitant]
     Active Substance: CARVEDILOL
  5. RANITIDINE. [Concomitant]
     Active Substance: RANITIDINE
  6. PROAIR HFA [Concomitant]
     Active Substance: ALBUTEROL SULFATE

REACTIONS (1)
  - Death [None]

NARRATIVE: CASE EVENT DATE: 20190918
